FAERS Safety Report 9696124 (Version 2)
Quarter: 2014Q1

REPORT INFORMATION
  Report Type: Report from Study
  Country: DE (occurrence: DE)
  Receive Date: 20131119
  Receipt Date: 20140314
  Transmission Date: 20141002
  Serious: Yes (Hospitalization)
  Sender: FDA-Public Use
  Company Number: DE-AMGEN-DEUCT2013081115

PATIENT
  Age: 61 Year
  Sex: Female

DRUGS (6)
  1. ETANERCEPT [Suspect]
     Indication: PRODUCT USED FOR UNKNOWN INDICATION
     Dosage: 50 MG, EVERY 10 DAYS
     Route: 065
  2. PANTOZOL                           /01263204/ [Concomitant]
     Dosage: UNK
  3. LYRICA [Concomitant]
     Dosage: UNK
  4. CLONIDINE [Concomitant]
     Dosage: UNK
  5. CIPROFLOXACIN [Concomitant]
     Indication: ESCHERICHIA URINARY TRACT INFECTION
     Dosage: UNK
     Route: 048
  6. ASS [Concomitant]
     Dosage: UNK

REACTIONS (1)
  - Escherichia urinary tract infection [Recovered/Resolved]
